FAERS Safety Report 8444001-5 (Version None)
Quarter: 2012Q2

REPORT INFORMATION
  Report Type: 
  Country: None (occurrence: None)
  Receive Date: 20120618
  Receipt Date: 20120612
  Transmission Date: 20120825
  Serious: Yes (Other)
  Sender: FDA-Public Use
  Company Number: PHHY2012JP039437

PATIENT
  Age: 30 Year
  Sex: Male

DRUGS (3)
  1. VOLTAREN [Suspect]
     Indication: ANALGESIC THERAPY
     Route: 048
  2. LOXOMARIN [Suspect]
     Route: 048
  3. AMOXICILLIN [Suspect]
     Route: 048

REACTIONS (5)
  - DRUG ERUPTION [None]
  - ERYTHEMA [None]
  - HIV INFECTION [None]
  - BLOOD HIV RNA DECREASED [None]
  - PYREXIA [None]
